FAERS Safety Report 4476192-5 (Version None)
Quarter: 2004Q3

REPORT INFORMATION
  Report Type: 
  Country: None (occurrence: None)
  Receive Date: 20040923
  Receipt Date: 20040729
  Transmission Date: 20050211
  Serious: No
  Sender: FDA-Public Use
  Company Number: USA040774016

PATIENT
  Age: 77 Year
  Sex: Female
  Weight: 52 kg

DRUGS (3)
  1. FORTEO [Suspect]
     Dates: start: 20040722
  2. ASPIRIN [Concomitant]
  3. TYLENOL [Concomitant]

REACTIONS (1)
  - INJECTION SITE HAEMORRHAGE [None]
